FAERS Safety Report 4479019-0 (Version None)
Quarter: 2004Q4

REPORT INFORMATION
  Report Type: 
  Country: None (occurrence: None)
  Receive Date: 20041015
  Receipt Date: 20041004
  Transmission Date: 20050328
  Serious: Yes (Hospitalization)
  Sender: FDA-Public Use
  Company Number: 02100-JPN-04-0216

PATIENT
  Age: 84 Year
  Sex: Male

DRUGS (6)
  1. CILOSTAZOL [Suspect]
     Indication: CEREBRAL INFARCTION
     Dosage: 100 MG ORAL
     Route: 048
     Dates: end: 20040727
  2. POTASSIUM CITRATE/SODIUM CITRATE [Concomitant]
  3. PROPIVERINE HYDROCHLORIDE [Concomitant]
  4. ETIZOLAM [Concomitant]
  5. SENNOSIDE [Concomitant]
  6. RISPERIDONE [Concomitant]

REACTIONS (5)
  - BENIGN PROSTATIC HYPERPLASIA [None]
  - CONDITION AGGRAVATED [None]
  - HAEMATEMESIS [None]
  - METASTATIC NEOPLASM [None]
  - ULCER HAEMORRHAGE [None]
